FAERS Safety Report 19389123 (Version 2)
Quarter: 2021Q2

REPORT INFORMATION
  Report Type: Spontaneous
  Country: IT (occurrence: IT)
  Receive Date: 20210607
  Receipt Date: 20210609
  Transmission Date: 20210717
  Serious: Yes (Death, Life-Threatening, Hospitalization, Other)
  Sender: FDA-Public Use
  Company Number: IT-CELLTRION INC.-2021IT007567

PATIENT

DRUGS (3)
  1. PREDNISONE. [Concomitant]
     Active Substance: PREDNISONE
     Indication: GRANULOMATOSIS WITH POLYANGIITIS
     Dosage: 2.5MG/DAY
     Route: 065
  2. RITUXIMAB (UNKNOWN) [Suspect]
     Active Substance: RITUXIMAB
     Indication: GRANULOMATOSIS WITH POLYANGIITIS
     Dosage: UNK (PHARMACEUTICAL DOSE FORM: INFUSION, SOLUTION)
     Route: 042
     Dates: start: 201710
  3. RITUXIMAB (UNKNOWN) [Suspect]
     Active Substance: RITUXIMAB
     Dosage: 500 MG FIXED SIX?MONTH DOSE (PHARMACEUTICAL DOSE FORM: INFUSION, SOLUTION)
     Route: 042
     Dates: start: 20201109

REACTIONS (4)
  - Lymphopenia [Unknown]
  - Hypogammaglobulinaemia [Unknown]
  - Respiratory failure [Unknown]
  - COVID-19 [Fatal]

NARRATIVE: CASE EVENT DATE: 20201224
